FAERS Safety Report 14376016 (Version 1)
Quarter: 2018Q1

REPORT INFORMATION
  Report Type: Spontaneous
  Country: US (occurrence: US)
  Receive Date: 20180110
  Receipt Date: 20180110
  Transmission Date: 20180509
  Serious: Yes (Death)
  Sender: FDA-Public Use
  Company Number: None

PATIENT
  Age: 47 Year
  Sex: Female

DRUGS (1)
  1. CAPECITABINE 500MG [Suspect]
     Active Substance: CAPECITABINE
     Dosage: 2 TABS IN AM, AND 2 TABS IN PM DAILY ORAL
     Route: 048
     Dates: start: 20171202

REACTIONS (2)
  - Disease progression [None]
  - Breast cancer [None]

NARRATIVE: CASE EVENT DATE: 201801
